FAERS Safety Report 25385531 (Version 2)
Quarter: 2025Q3

REPORT INFORMATION
  Report Type: Spontaneous
  Country: US (occurrence: US)
  Receive Date: 20250602
  Receipt Date: 20250709
  Transmission Date: 20251021
  Serious: Yes (Hospitalization)
  Sender: DAIICHI
  Company Number: US-DSJP-DS-2025-144004-USAA

PATIENT
  Sex: Female

DRUGS (1)
  1. VANFLYTA [Suspect]
     Active Substance: QUIZARTINIB DIHYDROCHLORIDE
     Indication: Acute myeloid leukaemia
     Dosage: 17.07 MG, BID (2 TABLETS ONCE DAILY ON DAYS 8-21 OF A 28 DAY CYCLE)
     Route: 048
     Dates: start: 20250529

REACTIONS (1)
  - Biopsy bone marrow [Not Recovered/Not Resolved]
